FAERS Safety Report 17282042 (Version 1)
Quarter: 2020Q1

REPORT INFORMATION
  Report Type: Spontaneous
  Country: US (occurrence: US)
  Receive Date: 20191230
  Receipt Date: 20191230
  Transmission Date: 20200409
  Serious: Yes (Hospitalization)
  Sender: FDA-Public Use
  Company Number: None

PATIENT
  Age: 41 Year
  Sex: Male

DRUGS (6)
  1. OMEPRAZOLE. [Concomitant]
     Active Substance: OMEPRAZOLE
  2. LORAZEPAM. [Concomitant]
     Active Substance: LORAZEPAM
  3. GABAPENTIN. [Concomitant]
     Active Substance: GABAPENTIN
  4. DIPEN/ATROP [Concomitant]
  5. VITANIN D3 [Concomitant]
  6. CAPECITABINE 500MG [Suspect]
     Active Substance: CAPECITABINE
     Indication: COLON CANCER
     Route: 048
     Dates: start: 20190918, end: 20191228

REACTIONS (3)
  - Diarrhoea [None]
  - Immune system disorder [None]
  - Ill-defined disorder [None]

NARRATIVE: CASE EVENT DATE: 20191228
